FAERS Safety Report 17268563 (Version 4)
Quarter: 2021Q1

REPORT INFORMATION
  Report Type: Report from Study
  Country: US (occurrence: US)
  Receive Date: 20200114
  Receipt Date: 20210301
  Transmission Date: 20210419
  Serious: Yes (Hospitalization, Other)
  Sender: FDA-Public Use
  Company Number: US-ENDO PHARMACEUTICALS INC-2020-111346

PATIENT
  Age: 16 Year
  Sex: Male
  Weight: 68.1 kg

DRUGS (13)
  1. RUXOLITINIB [Suspect]
     Active Substance: RUXOLITINIB
     Indication: ACUTE LYMPHOCYTIC LEUKAEMIA
     Dosage: 90 MG, BID
     Route: 048
     Dates: start: 20161116, end: 20191205
  2. VINCRISTINE [Suspect]
     Active Substance: VINCRISTINE
     Indication: ACUTE LYMPHOCYTIC LEUKAEMIA
     Dosage: 2 MG, UNKNOWN
     Route: 042
     Dates: start: 20161011
  3. METHOTREXATE SODIUM. [Suspect]
     Active Substance: METHOTREXATE SODIUM
     Indication: ACUTE LYMPHOCYTIC LEUKAEMIA
     Dosage: 35 MG (15 MG/M2/DOSE WEEKLY)
     Route: 048
     Dates: start: 20170130, end: 20191107
  4. MERCAPTOPURINE. [Suspect]
     Active Substance: MERCAPTOPURINE
     Indication: ACUTE LYMPHOCYTIC LEUKAEMIA
     Dosage: 900 MG, WEEKLY
     Route: 048
     Dates: start: 20161116, end: 20191120
  5. RUXOLITINIB [Suspect]
     Active Substance: RUXOLITINIB
     Dosage: 85 MG, BID
     Route: 048
     Dates: start: 20191212
  6. PREDNISONE. [Suspect]
     Active Substance: PREDNISONE
     Indication: ACUTE LYMPHOCYTIC LEUKAEMIA
     Dosage: 35 MG, BID
     Route: 048
     Dates: start: 20161011, end: 20191112
  7. METHOTREXATE SODIUM. [Suspect]
     Active Substance: METHOTREXATE SODIUM
     Dosage: 17.2 MG, (10MG/M2/DOSE) WEEKLY
     Route: 048
     Dates: start: 20191212
  8. MERCAPTOPURINE. [Suspect]
     Active Substance: MERCAPTOPURINE
     Dosage: 450 MG, WEEKLY
     Route: 048
     Dates: start: 20191212
  9. PREDNISONE. [Suspect]
     Active Substance: PREDNISONE
     Dosage: 35 MG, BID
     Route: 048
     Dates: start: 20200102
  10. METHOTREXATE. [Suspect]
     Active Substance: METHOTREXATE
     Dosage: 15 MG, UNKNOWN
     Route: 037
     Dates: start: 20200102
  11. LORATADINE. [Concomitant]
     Active Substance: LORATADINE
     Indication: PRODUCT USED FOR UNKNOWN INDICATION
     Dosage: UNK UNKNOWN, UNKNOWN
     Route: 065
     Dates: start: 20170915
  12. SALBUTAMOL SULFATE [Concomitant]
     Active Substance: ALBUTEROL SULFATE
     Indication: PRODUCT USED FOR UNKNOWN INDICATION
     Dosage: UNK UNKNOWN, UNKNOWN
     Route: 065
     Dates: start: 20170928, end: 20190131
  13. METHOTREXATE. [Suspect]
     Active Substance: METHOTREXATE
     Indication: ACUTE LYMPHOCYTIC LEUKAEMIA
     Dosage: 15 MG, UNKNOWN
     Route: 037
     Dates: start: 20161018, end: 20190913

REACTIONS (5)
  - Adenovirus infection [Recovered/Resolved]
  - Pyrexia [Recovered/Resolved]
  - Pneumonia [Recovered/Resolved]
  - Febrile neutropenia [Recovered/Resolved]
  - Parainfluenzae virus infection [Recovered/Resolved]

NARRATIVE: CASE EVENT DATE: 20191114
